FAERS Safety Report 16636311 (Version 4)
Quarter: 2019Q3

REPORT INFORMATION
  Report Type: Report from Study
  Country: DE (occurrence: DE)
  Receive Date: 20190726
  Receipt Date: 20190911
  Transmission Date: 20191004
  Serious: Yes (Life-Threatening, Hospitalization)
  Sender: FDA-Public Use
  Company Number: DE-EMD SERONO-9106999

PATIENT
  Age: 50 Year
  Sex: Female

DRUGS (1)
  1. MAVENCLAD [Suspect]
     Active Substance: CLADRIBINE
     Indication: MULTIPLE SCLEROSIS
     Dosage: WEEK ONE THERAPY
     Route: 048
     Dates: start: 20190715

REACTIONS (7)
  - Feeling abnormal [Unknown]
  - Ventricular fibrillation [Unknown]
  - Cardiac output decreased [Unknown]
  - Myocardial infarction [Unknown]
  - Coma [Recovering/Resolving]
  - Limb discomfort [Unknown]
  - Circulatory collapse [Unknown]

NARRATIVE: CASE EVENT DATE: 20190717
